FAERS Safety Report 16468394 (Version 1)
Quarter: 2019Q3

REPORT INFORMATION
  Report Type: Spontaneous
  Country: US (occurrence: US)
  Receive Date: 20190623
  Receipt Date: 20190623
  Transmission Date: 20191004
  Serious: Yes (Other)
  Sender: FDA-Public Use
  Company Number: None

PATIENT
  Age: 70 Day
  Sex: Male
  Weight: 2.8 kg

DRUGS (2)
  1. DIAZOXIDE [Suspect]
     Active Substance: DIAZOXIDE
  2. NONE [Suspect]
     Active Substance: UNSPECIFIED INGREDIENT

REACTIONS (2)
  - Respiratory failure [None]
  - Oedema [None]

NARRATIVE: CASE EVENT DATE: 20190623
